FAERS Safety Report 26171866 (Version 1)
Quarter: 2025Q4

REPORT INFORMATION
  Report Type: Report from Study
  Country: EU (occurrence: EU)
  Receive Date: 20251217
  Receipt Date: 20251217
  Transmission Date: 20260117
  Serious: Yes (Hospitalization)
  Sender: ABBVIE
  Company Number: EU-ABBVIE-6535237

PATIENT
  Age: 82 Year
  Sex: Male

DRUGS (3)
  1. FOSCARBIDOPA\FOSLEVODOPA [Suspect]
     Active Substance: FOSCARBIDOPA\FOSLEVODOPA
     Indication: Parkinson^s disease
     Dosage: LD: 1.20ML ?CR: LOW: ?0.34ML/H ?BASE: 0.47ML/H ?HIGH:0.45ML/H ?ED: 0.20ML
     Route: 058
     Dates: start: 20250903, end: 20251112
  2. FOSCARBIDOPA\FOSLEVODOPA [Suspect]
     Active Substance: FOSCARBIDOPA\FOSLEVODOPA
     Dosage: DOSE REDUCED
     Route: 058
     Dates: start: 20251112, end: 20251209
  3. FOSCARBIDOPA\FOSLEVODOPA [Suspect]
     Active Substance: FOSCARBIDOPA\FOSLEVODOPA
     Route: 058
     Dates: start: 202512

REACTIONS (7)
  - Asthenia [Not Recovered/Not Resolved]
  - Hallucination, visual [Not Recovered/Not Resolved]
  - Ageusia [Unknown]
  - Abnormal dreams [Not Recovered/Not Resolved]
  - Dysgeusia [Unknown]
  - Decreased appetite [Not Recovered/Not Resolved]
  - Starvation [Not Recovered/Not Resolved]

NARRATIVE: CASE EVENT DATE: 20250101
